FAERS Safety Report 25187292 (Version 1)
Quarter: 2025Q2

REPORT INFORMATION
  Report Type: Spontaneous
  Country: JP (occurrence: JP)
  Receive Date: 20250411
  Receipt Date: 20250411
  Transmission Date: 20250716
  Serious: Yes (Death, Other)
  Sender: SPECGX
  Company Number: JP-SPECGX-T202301821

PATIENT
  Age: 51 Year
  Sex: Female

DRUGS (8)
  1. METHADONE [Suspect]
     Active Substance: METHADONE HYDROCHLORIDE
     Indication: Cancer pain
     Dosage: 5 MILLIGRAM, QD
     Route: 048
     Dates: start: 202302
  2. METHADONE [Suspect]
     Active Substance: METHADONE HYDROCHLORIDE
     Dosage: 15 MILLIGRAM, QD
     Route: 048
     Dates: start: 202303
  3. OXYCODONE HYDROCHLORIDE [Concomitant]
     Active Substance: OXYCODONE HYDROCHLORIDE
     Indication: Cancer pain
     Route: 065
  4. OXYCODONE HYDROCHLORIDE [Concomitant]
     Active Substance: OXYCODONE HYDROCHLORIDE
     Route: 065
  5. FENTANYL CITRATE [Concomitant]
     Active Substance: FENTANYL CITRATE
     Indication: Cancer pain
     Route: 062
  6. FENTANYL CITRATE [Concomitant]
     Active Substance: FENTANYL CITRATE
     Route: 062
     Dates: start: 202302
  7. FENTANYL CITRATE [Concomitant]
     Active Substance: FENTANYL CITRATE
     Route: 062
     Dates: start: 202302
  8. DENOSUMAB [Concomitant]
     Active Substance: DENOSUMAB
     Indication: Metastases to bone
     Route: 065

REACTIONS (3)
  - Breast cancer recurrent [Fatal]
  - Neoplasm progression [Fatal]
  - Electrocardiogram QT prolonged [Unknown]
